FAERS Safety Report 16822196 (Version 1)
Quarter: 2019Q3

REPORT INFORMATION
  Report Type: Spontaneous
  Country: US (occurrence: US)
  Receive Date: 20190726
  Receipt Date: 20190726
  Transmission Date: 20191005
  Serious: Yes (Hospitalization)
  Sender: FDA-Public Use
  Company Number: None

PATIENT
  Age: 70 Year
  Sex: Male

DRUGS (1)
  1. PREDNISONE. [Suspect]
     Active Substance: PREDNISONE
     Indication: ARTHRITIS
     Route: 048
     Dates: start: 20190108, end: 20190522

REACTIONS (5)
  - Hypotension [None]
  - Malaise [None]
  - Hypophagia [None]
  - Adrenal insufficiency [None]
  - Decreased appetite [None]

NARRATIVE: CASE EVENT DATE: 20190522
